FAERS Safety Report 5066219-4 (Version None)
Quarter: 2006Q3

REPORT INFORMATION
  Report Type: 
  Country: None (occurrence: None)
  Receive Date: 20060801
  Receipt Date: 20060720
  Transmission Date: 20061208
  Serious: Yes (Hospitalization, Other)
  Sender: FDA-Public Use
  Company Number: US-JNJFOC-20060704407

PATIENT
  Sex: Female
  Weight: 92.99 kg

DRUGS (6)
  1. REMICADE [Suspect]
     Indication: RHEUMATOID ARTHRITIS
     Route: 042
  2. NEXIUM [Concomitant]
  3. ALBUTEROL SPIROS [Concomitant]
  4. OXYGEN [Concomitant]
  5. XALATAN [Concomitant]
     Route: 047
  6. PREDNOZORE [Concomitant]

REACTIONS (3)
  - CHEST PAIN [None]
  - FOOT FRACTURE [None]
  - PYREXIA [None]
